FAERS Safety Report 4933031-3 (Version None)
Quarter: 2006Q1

REPORT INFORMATION
  Report Type: 
  Country: None (occurrence: None)
  Receive Date: 20060301
  Receipt Date: 20060217
  Transmission Date: 20060701
  Serious: Yes (Hospitalization, Other)
  Sender: FDA-Public Use
  Company Number: 2006025376

PATIENT
  Age: 60 Year
  Sex: Male

DRUGS (4)
  1. NORVASC [Suspect]
     Indication: HYPERTENSION
     Dosage: 5 MG (5 MG, QD INTERVAL: EVERY DAY), ORAL
     Route: 048
     Dates: start: 20050301
  2. LIPITOR [Suspect]
     Indication: BLOOD CHOLESTEROL INCREASED
     Dosage: 20 MG (20 MG,QD INTERVAL: EVERY DAY), ORAL
     Route: 048
     Dates: start: 20050101
  3. ENALAPRIL MALEATE [Concomitant]
  4. METOPROLOL [Concomitant]

REACTIONS (3)
  - CEREBROVASCULAR ACCIDENT [None]
  - LOW DENSITY LIPOPROTEIN INCREASED [None]
  - WEIGHT DECREASED [None]
